FAERS Safety Report 4789241-1 (Version None)
Quarter: 2005Q4

REPORT INFORMATION
  Report Type: 
  Country: None (occurrence: None)
  Receive Date: 20051005
  Receipt Date: 20050928
  Transmission Date: 20060501
  Serious: Yes (Hospitalization)
  Sender: FDA-Public Use
  Company Number: NL-MERCK-0510USA00469

PATIENT
  Age: 53 Year
  Sex: Female

DRUGS (2)
  1. HYDRODIURIL [Suspect]
     Indication: HYPERTENSION
     Route: 048
  2. FUROSEMIDE [Suspect]
     Indication: OEDEMA PERIPHERAL
     Route: 065

REACTIONS (16)
  - ALKALOSIS [None]
  - BLOOD PRESSURE DECREASED [None]
  - BUNDLE BRANCH BLOCK RIGHT [None]
  - DEHYDRATION [None]
  - DIZZINESS [None]
  - HYPERVENTILATION [None]
  - HYPOKALAEMIA [None]
  - HYPONATRAEMIA [None]
  - LETHARGY [None]
  - METABOLIC ALKALOSIS [None]
  - MUSCLE SPASMS [None]
  - PARAESTHESIA [None]
  - RESPIRATORY ALKALOSIS [None]
  - TREMOR [None]
  - VENTRICULAR ARRHYTHMIA [None]
  - VENTRICULAR FIBRILLATION [None]
